FAERS Safety Report 12880041 (Version 1)
Quarter: 2016Q4

REPORT INFORMATION
  Report Type: Spontaneous
  Country: US (occurrence: US)
  Receive Date: 20161025
  Receipt Date: 20161025
  Transmission Date: 20170207
  Serious: No
  Sender: FDA-Public Use
  Company Number: US-JNJFOC-20161015390

PATIENT
  Age: 64 Year
  Sex: Male
  Weight: 77.11 kg

DRUGS (2)
  1. ZYRTEC [Suspect]
     Active Substance: CETIRIZINE HYDROCHLORIDE
     Route: 048
  2. ZYRTEC [Suspect]
     Active Substance: CETIRIZINE HYDROCHLORIDE
     Indication: SINUS DISORDER
     Route: 048

REACTIONS (4)
  - Pyrexia [Unknown]
  - Off label use [Unknown]
  - Haemoptysis [Unknown]
  - Product use issue [Unknown]

NARRATIVE: CASE EVENT DATE: 20161017
